FAERS Safety Report 22264013 (Version 1)
Quarter: 2023Q2

REPORT INFORMATION
  Report Type: Spontaneous
  Country: GR (occurrence: GR)
  Receive Date: 20230428
  Receipt Date: 20230428
  Transmission Date: 20230722
  Serious: Yes (Other)
  Sender: FDA-Public Use
  Company Number: GR-TAKEDA-2023TUS041359

PATIENT
  Age: 58 Year
  Sex: Female

DRUGS (3)
  1. LEUPROLIDE ACETATE [Suspect]
     Active Substance: LEUPROLIDE ACETATE
     Indication: Breast cancer metastatic
     Dosage: STRENGTH- 3.75 MILLIGRAM, MONTHLY
     Route: 030
  2. LEUPROLIDE ACETATE [Suspect]
     Active Substance: LEUPROLIDE ACETATE
     Dosage: UNK UNK, Q3MONTHS
     Route: 065
  3. FEMARA [Concomitant]
     Active Substance: LETROZOLE
     Indication: Product used for unknown indication

REACTIONS (2)
  - Metastasis [Unknown]
  - Product dose omission issue [Unknown]
